FAERS Safety Report 19692780 (Version 8)
Quarter: 2022Q3

REPORT INFORMATION
  Report Type: Report from Study
  Country: CA (occurrence: CA)
  Receive Date: 20210812
  Receipt Date: 20220705
  Transmission Date: 20221026
  Serious: Yes (Other)
  Sender: FDA-Public Use
  Company Number: CA-BRISTOL-MYERS SQUIBB COMPANY-BMS-2021-074854

PATIENT
  Age: 67 Year
  Sex: Male
  Weight: 102.27 kg

DRUGS (2)
  1. ORENCIA [Suspect]
     Active Substance: ABATACEPT
     Indication: Rheumatoid arthritis
     Dosage: 4 WEEKS
     Route: 042
     Dates: start: 20160303
  2. METHOTREXATE [Concomitant]
     Active Substance: METHOTREXATE
     Indication: Product used for unknown indication
     Dosage: UNK
     Route: 065
     Dates: start: 20000201

REACTIONS (8)
  - Colon cancer [Not Recovered/Not Resolved]
  - Carpal tunnel syndrome [Unknown]
  - General physical health deterioration [Not Recovered/Not Resolved]
  - Blood pressure systolic increased [Recovered/Resolved]
  - C-reactive protein increased [Recovering/Resolving]
  - Synovitis [Unknown]
  - Haemorrhoids [Not Recovered/Not Resolved]
  - Insomnia [Not Recovered/Not Resolved]

NARRATIVE: CASE EVENT DATE: 20220101
